FAERS Safety Report 18191366 (Version 2)
Quarter: 2020Q3

REPORT INFORMATION
  Report Type: Spontaneous
  Country: US (occurrence: US)
  Receive Date: 20200825
  Receipt Date: 20200827
  Transmission Date: 20201103
  Serious: No
  Sender: FDA-Public Use
  Company Number: US-TEVA-2020-US-1818400

PATIENT
  Sex: Female

DRUGS (1)
  1. CARBIDOPA AND LEVODOPA TEVA [Suspect]
     Active Substance: CARBIDOPA\LEVODOPA
     Indication: PARKINSON^S DISEASE
     Dosage: 25 / 100 MG
     Route: 065
     Dates: start: 202008

REACTIONS (3)
  - Product quality issue [Unknown]
  - Product substitution issue [Unknown]
  - Nausea [Unknown]
